FAERS Safety Report 13942511 (Version 1)
Quarter: 2017Q3

REPORT INFORMATION
  Report Type: Report from Study
  Country: US (occurrence: US)
  Receive Date: 20170906
  Receipt Date: 20170906
  Transmission Date: 20171127
  Serious: Yes (Hospitalization)
  Sender: FDA-Public Use
  Company Number: US-VIFOR (INTERNATIONAL) INC.-VIT-2017-09073

PATIENT
  Age: 70 Year
  Sex: Female

DRUGS (11)
  1. MEGESTROL [Concomitant]
     Active Substance: MEGESTROL
  2. ONDANSETRON HYDROCHLORIDE. [Concomitant]
     Active Substance: ONDANSETRON HYDROCHLORIDE
  3. PREDNISONE. [Concomitant]
     Active Substance: PREDNISONE
  4. COREG [Concomitant]
     Active Substance: CARVEDILOL
  5. ELIQUIS [Concomitant]
     Active Substance: APIXABAN
  6. RENVELA [Concomitant]
     Active Substance: SEVELAMER CARBONATE
  7. AMIODARONE [Concomitant]
     Active Substance: AMIODARONE
  8. FOLIC ACID. [Concomitant]
     Active Substance: FOLIC ACID
  9. MIDODRINE [Concomitant]
     Active Substance: MIDODRINE
  10. PANTOPRAZOLE [Concomitant]
     Active Substance: PANTOPRAZOLE
  11. VELTASSA [Suspect]
     Active Substance: PATIROMER
     Indication: HYPERKALAEMIA
     Route: 048
     Dates: start: 20170823, end: 201708

REACTIONS (3)
  - Adverse drug reaction [Unknown]
  - Abdominal pain [Unknown]
  - Constipation [Unknown]

NARRATIVE: CASE EVENT DATE: 201708
